FAERS Safety Report 11144410 (Version 2)
Quarter: 2015Q2

REPORT INFORMATION
  Report Type: Spontaneous
  Country: US (occurrence: US)
  Receive Date: 20150526
  Receipt Date: 20150601
  Transmission Date: 20150821
  Serious: No
  Sender: FDA-Public Use
  Company Number: US-PFIZER INC-2014115139

PATIENT
  Age: 63 Year
  Sex: Male
  Weight: 70.3 kg

DRUGS (1)
  1. SUTENT [Suspect]
     Active Substance: SUNITINIB MALATE
     Indication: THYMOMA MALIGNANT
     Dosage: 37.5 MG, DAILY
     Dates: start: 20140201

REACTIONS (7)
  - Epistaxis [Unknown]
  - Fatigue [Not Recovered/Not Resolved]
  - Swelling face [Unknown]
  - Pyrexia [Unknown]
  - Eye pain [Unknown]
  - Asthenopia [Unknown]
  - Product use issue [Unknown]
